APPROVED DRUG PRODUCT: ETHOSUXIMIDE
Active Ingredient: ETHOSUXIMIDE
Strength: 250MG
Dosage Form/Route: CAPSULE;ORAL
Application: A040686 | Product #001 | TE Code: AB
Applicant: EPIC PHARMA LLC
Approved: May 28, 2008 | RLD: No | RS: No | Type: RX